FAERS Safety Report 7636587-5 (Version None)
Quarter: 2011Q3

REPORT INFORMATION
  Report Type: 
  Country: None (occurrence: None)
  Receive Date: 20110726
  Receipt Date: 20110714
  Transmission Date: 20111222
  Serious: No
  Sender: FDA-Public Use
  Company Number: US-BIOGENIDEC-2011BI026441

PATIENT
  Sex: Female

DRUGS (2)
  1. TYSABRI [Suspect]
     Indication: MULTIPLE SCLEROSIS
     Route: 042
     Dates: start: 20071001
  2. NEURONTIN [Concomitant]
     Indication: PAIN IN EXTREMITY

REACTIONS (6)
  - HERPES ZOSTER [None]
  - PAIN IN EXTREMITY [None]
  - SINUSITIS [None]
  - FALL [None]
  - TEMPERATURE INTOLERANCE [None]
  - SPINAL COLUMN INJURY [None]
